FAERS Safety Report 8265791-0 (Version None)
Quarter: 2012Q2

REPORT INFORMATION
  Report Type: 
  Country: None (occurrence: None)
  Receive Date: 20120406
  Receipt Date: 20120403
  Transmission Date: 20120825
  Serious: Yes (Death, Hospitalization, Other)
  Sender: FDA-Public Use
  Company Number: PHHY2011BR108986

PATIENT
  Age: 34 Year
  Sex: Female
  Weight: 56 kg

DRUGS (3)
  1. CEFTRIAXONE [Suspect]
     Dosage: 2 G, UNK
  2. METAMIZOLE [Suspect]
  3. CEFTRIAXONE [Suspect]
     Indication: PYELONEPHRITIS
     Route: 030

REACTIONS (37)
  - CARDIAC ARREST [None]
  - USE OF ACCESSORY RESPIRATORY MUSCLES [None]
  - METABOLIC ACIDOSIS [None]
  - BONE MARROW FAILURE [None]
  - LEUKOPENIA [None]
  - ORAL CANDIDIASIS [None]
  - PARVOVIRUS B19 TEST POSITIVE [None]
  - AGITATION [None]
  - CARDIOGENIC SHOCK [None]
  - DYSPNOEA [None]
  - BRONCHOPULMONARY ASPERGILLOSIS [None]
  - HYPOTENSION [None]
  - PYELONEPHRITIS CHRONIC [None]
  - SEPTIC SHOCK [None]
  - MITRAL VALVE STENOSIS [None]
  - OEDEMA PERIPHERAL [None]
  - MITRAL VALVE DISEASE [None]
  - TRICUSPID VALVE INCOMPETENCE [None]
  - BRONCHOPNEUMONIA [None]
  - TACHYCARDIA [None]
  - PYREXIA [None]
  - CONVULSION [None]
  - RENAL FAILURE ACUTE [None]
  - PULMONARY HYPERTENSION [None]
  - CYTOMEGALOVIRUS TEST POSITIVE [None]
  - AGRANULOCYTOSIS [None]
  - NEUTROPENIA [None]
  - OLIGOHYDRAMNIOS [None]
  - AORTIC VALVE INCOMPETENCE [None]
  - RESPIRATORY DISTRESS [None]
  - WHEEZING [None]
  - OLIGURIA [None]
  - LEUKOCYTOSIS [None]
  - MATERNAL EXPOSURE DURING PREGNANCY [None]
  - PRODUCTIVE COUGH [None]
  - MULTI-ORGAN FAILURE [None]
  - DEPRESSED LEVEL OF CONSCIOUSNESS [None]
